FAERS Safety Report 5904528-4 (Version None)
Quarter: 2008Q3

REPORT INFORMATION
  Report Type: 
  Country: None (occurrence: None)
  Receive Date: 20080909
  Receipt Date: 20071126
  Transmission Date: 20090109
  Serious: Yes (Death)
  Sender: FDA-Public Use
  Company Number: 163-20785-07100872

PATIENT
  Age: 73 Year
  Sex: Male

DRUGS (2)
  1. THALOMID [Suspect]
     Indication: RENAL CANCER
     Dosage: 50 MG, QD, ORAL : 100 MG, QD, ORAL
     Route: 048
     Dates: start: 20070914, end: 20070101
  2. THALOMID [Suspect]
     Indication: RENAL CANCER
     Dosage: 50 MG, QD, ORAL : 100 MG, QD, ORAL
     Route: 048
     Dates: start: 20070904

REACTIONS (1)
  - NEOPLASM PROGRESSION [None]
